FAERS Safety Report 6611650-6 (Version None)
Quarter: 2010Q1

REPORT INFORMATION
  Report Type: 
  Country: None (occurrence: None)
  Receive Date: 20100303
  Receipt Date: 20100218
  Transmission Date: 20100710
  Serious: Yes (Other)
  Sender: FDA-Public Use
  Company Number: PHHY2009IE51488

PATIENT
  Sex: Male

DRUGS (6)
  1. CLOZARIL [Suspect]
     Indication: SCHIZOPHRENIA
     Dosage: UNK
     Dates: start: 20090925
  2. CLOZARIL [Suspect]
     Dosage: 100 MG MANE AND 200 MG NOCTE
  3. OLANZAPINE [Concomitant]
     Dosage: 15 MG NOCTE
  4. OLANZAPINE [Concomitant]
     Dosage: UNK
  5. ESCITALOPRAM [Concomitant]
     Dosage: 20 MG, QD
  6. CITALOPRAM HYDROBROMIDE [Concomitant]
     Indication: DEPRESSION
     Dosage: UNK

REACTIONS (6)
  - AGRANULOCYTOSIS [None]
  - DEPRESSION [None]
  - MONOCYTE COUNT INCREASED [None]
  - NEUTROPENIA [None]
  - TACHYCARDIA [None]
  - WHITE BLOOD CELL COUNT DECREASED [None]
